FAERS Safety Report 16758940 (Version 2)
Quarter: 2019Q3

REPORT INFORMATION
  Report Type: Spontaneous
  Country: JP (occurrence: JP)
  Receive Date: 20190830
  Receipt Date: 20190905
  Transmission Date: 20191005
  Serious: Yes (Other)
  Sender: FDA-Public Use
  Company Number: JP-GLAXOSMITHKLINE-JP2019JPN144828

PATIENT
  Sex: Female
  Weight: 56 kg

DRUGS (7)
  1. CARBAZOCHROME SULFONATE NA TABLETS [Concomitant]
     Indication: HAEMORRHAGE IN PREGNANCY
     Dosage: 90 MG, 1D
     Route: 048
     Dates: start: 20190125, end: 20190130
  2. TOKISHAKUYAKUSAN [Concomitant]
     Active Substance: HERBALS
     Indication: PREMATURE LABOUR
     Dosage: 7.5 G, 1D
     Route: 048
     Dates: start: 20190513, end: 20190527
  3. MARZULENE S COMBINATION GRANULES [Concomitant]
     Indication: ANAEMIA
     Dosage: 1 G, 1D
     Route: 048
     Dates: start: 20190527, end: 20190609
  4. LAMICTAL [Suspect]
     Active Substance: LAMOTRIGINE
     Indication: EPILEPSY
     Dosage: 100 MG, 1D
     Route: 048
     Dates: start: 201711
  5. FERROMIA TABLETS [Concomitant]
     Indication: ANAEMIA
     Dosage: 100 MG, 1D
     Route: 048
     Dates: start: 20190527, end: 20190609
  6. RITODRINE [Concomitant]
     Active Substance: RITODRINE
     Indication: ABDOMINAL DISTENSION
     Dosage: 15 MG, 1D
     Route: 048
     Dates: start: 20190513, end: 20190527
  7. DACTIL [Concomitant]
     Indication: ABDOMINAL DISTENSION
     Dosage: 150 MG, 1D
     Route: 048
     Dates: start: 20190125, end: 20190208

REACTIONS (7)
  - Exposure during pregnancy [Unknown]
  - Haemorrhage in pregnancy [Unknown]
  - Abdominal distension [Unknown]
  - Nasopharyngitis [Unknown]
  - Premature labour [Unknown]
  - Anaemia [Unknown]
  - Live birth [Unknown]

NARRATIVE: CASE EVENT DATE: 20190808
